FAERS Safety Report 24015392 (Version 1)
Quarter: 2024Q2

REPORT INFORMATION
  Report Type: Spontaneous
  Country: US (occurrence: US)
  Receive Date: 20240626
  Receipt Date: 20240626
  Transmission Date: 20240716
  Serious: No
  Sender: FDA-Public Use
  Company Number: US-TAKEDA-2024TUS063201

PATIENT
  Sex: Female
  Weight: 59 kg

DRUGS (4)
  1. TRINTELLIX [Suspect]
     Active Substance: VORTIOXETINE HYDROBROMIDE
     Indication: Major depression
     Dosage: 20 MILLIGRAM, QD
     Route: 065
     Dates: start: 2020
  2. POTASSIUM CITRATE [Concomitant]
     Active Substance: POTASSIUM CITRATE
     Dosage: UNK
  3. AMPHETAMINE [Concomitant]
     Active Substance: AMPHETAMINE
     Dosage: UNK
  4. SEROQUEL [Concomitant]
     Active Substance: QUETIAPINE FUMARATE
     Dosage: UNK

REACTIONS (2)
  - Wrong technique in product usage process [Unknown]
  - Therapeutic product effect decreased [Unknown]
